FAERS Safety Report 10145915 (Version 1)
Quarter: 2014Q2

REPORT INFORMATION
  Report Type: Spontaneous
  Country: US (occurrence: US)
  Receive Date: 20140501
  Receipt Date: 20140501
  Transmission Date: 20141212
  Serious: No
  Sender: FDA-Public Use
  Company Number: US-ABBVIE-14P-163-1215098-00

PATIENT
  Age: 65 Year
  Sex: Male
  Weight: 66.28 kg

DRUGS (4)
  1. CREON [Suspect]
     Indication: GASTRIC DISORDER
     Dosage: 3 CAPSULES WITH EACH MEALS
     Dates: start: 20140120
  2. ENALAPRIL [Concomitant]
     Indication: HYPERTENSION
  3. HYDROCHLOROTHIAZIDE [Concomitant]
     Indication: HYPERTENSION
  4. ZANTAC [Concomitant]
     Indication: DYSPEPSIA

REACTIONS (5)
  - Fatigue [Not Recovered/Not Resolved]
  - Abdominal distension [Not Recovered/Not Resolved]
  - Abdominal distension [Not Recovered/Not Resolved]
  - Dizziness [Not Recovered/Not Resolved]
  - Flatulence [Not Recovered/Not Resolved]
